FAERS Safety Report 6156886-6 (Version None)
Quarter: 2009Q2

REPORT INFORMATION
  Report Type: 
  Country: None (occurrence: None)
  Receive Date: 20090416
  Receipt Date: 20090413
  Transmission Date: 20091009
  Serious: Yes (Hospitalization)
  Sender: FDA-Public Use
  Company Number: US-ABBOTT-09P-163-0566689-00

PATIENT
  Sex: Female
  Weight: 52.21 kg

DRUGS (6)
  1. HUMIRA [Suspect]
     Indication: CROHN'S DISEASE
     Route: 058
     Dates: start: 20080401, end: 20090315
  2. HUMIRA [Suspect]
     Route: 058
     Dates: start: 20090315
  3. PHENERGAN [Concomitant]
     Indication: NAUSEA
     Dates: start: 20080528
  4. HYDROCODONE BITARTRATE [Concomitant]
     Indication: PAIN
  5. LEVAQUIN [Concomitant]
     Indication: DRUG USE FOR UNKNOWN INDICATION
     Route: 048
     Dates: start: 20090113, end: 20090120
  6. SLOW RELEASE IRON [Concomitant]
     Indication: ANAEMIA

REACTIONS (10)
  - ABSCESS INTESTINAL [None]
  - ANAL FISSURE [None]
  - ASCITES [None]
  - COMPUTERISED TOMOGRAM ABDOMEN ABNORMAL [None]
  - CROHN'S DISEASE [None]
  - CYSTITIS [None]
  - DIZZINESS [None]
  - ILEITIS [None]
  - ILEORECTAL FISTULA [None]
  - INTESTINAL FISTULA [None]
